FAERS Safety Report 23898551 (Version 1)
Quarter: 2024Q2

REPORT INFORMATION
  Report Type: Spontaneous
  Country: US (occurrence: US)
  Receive Date: 20240525
  Receipt Date: 20240525
  Transmission Date: 20240717
  Serious: No
  Sender: FDA-Public Use
  Company Number: US-MIMS-BCONMC-4543

PATIENT

DRUGS (1)
  1. INSULIN GLARGINE [Suspect]
     Active Substance: INSULIN GLARGINE
     Indication: Diabetes mellitus
     Dosage: 16 UNITS/ML, QD
     Route: 058

REACTIONS (1)
  - Device defective [Unknown]
